FAERS Safety Report 5810890-3 (Version None)
Quarter: 2008Q3

REPORT INFORMATION
  Report Type: 
  Country: None (occurrence: None)
  Receive Date: 20080716
  Receipt Date: 20080703
  Transmission Date: 20090109
  Serious: Yes (Hospitalization)
  Sender: FDA-Public Use
  Company Number: PHHY2008ES12814

PATIENT
  Age: 73 Year
  Sex: Male

DRUGS (6)
  1. TORECAN [Suspect]
     Indication: DIZZINESS
     Dosage: 6.5 MG, TID
     Route: 048
     Dates: start: 20080408, end: 20080412
  2. CHLORTHALIDONE [Concomitant]
     Indication: HYPERTENSION
     Dosage: 50 MG, QD
     Route: 048
  3. CHLORTHALIDONE [Concomitant]
     Dosage: 25 MG, QD
     Route: 048
  4. SPIRIVA [Concomitant]
     Indication: CHRONIC OBSTRUCTIVE PULMONARY DISEASE
     Dosage: 18 UG, QD
  5. SYMBICORT TURBUHALER ^DRACO^ [Concomitant]
     Indication: CHRONIC OBSTRUCTIVE PULMONARY DISEASE
     Dosage: 320/9, BID
     Route: 048
  6. IMMUNOGLOBULINS [Concomitant]

REACTIONS (3)
  - HAEMOLYTIC ANAEMIA [None]
  - HYPONATRAEMIA [None]
  - URINARY RETENTION [None]
